FAERS Safety Report 8295768-0 (Version None)
Quarter: 2012Q2

REPORT INFORMATION
  Report Type: 
  Country: None (occurrence: None)
  Receive Date: 20120418
  Receipt Date: 20120410
  Transmission Date: 20120825
  Serious: Yes (Hospitalization)
  Sender: FDA-Public Use
  Company Number: US-CELGENEUS-163-21880-12041047

PATIENT
  Sex: Female
  Weight: 55.842 kg

DRUGS (8)
  1. PREDNISONE TAB [Concomitant]
     Route: 065
  2. SYNTHROID [Concomitant]
     Route: 065
  3. PLAVIX [Concomitant]
     Route: 065
  4. REVLIMID [Suspect]
     Indication: MULTIPLE MYELOMA
     Dosage: 15 MILLIGRAM
     Route: 048
     Dates: start: 20120309
  5. COUMADIN [Concomitant]
     Route: 065
  6. DIGOXIN [Concomitant]
     Route: 065
  7. PEPCID [Concomitant]
     Route: 065
  8. LEXAPRO [Concomitant]
     Route: 065

REACTIONS (3)
  - VOMITING [None]
  - NAUSEA [None]
  - BLOOD SODIUM DECREASED [None]
